FAERS Safety Report 6069220-7 (Version None)
Quarter: 2009Q1

REPORT INFORMATION
  Report Type: 
  Country: None (occurrence: None)
  Receive Date: 20090206
  Receipt Date: 20090123
  Transmission Date: 20090719
  Serious: Yes (Hospitalization)
  Sender: FDA-Public Use
  Company Number: PHHY2009BR02565

PATIENT
  Sex: Female

DRUGS (5)
  1. TOFRANIL [Suspect]
     Indication: DEPRESSION
     Dosage: 150 MG, QD
     Route: 048
     Dates: start: 20040101
  2. RIVOTRIL [Suspect]
     Indication: SLEEP DISORDER
     Dosage: 2 MG, QHS
     Route: 048
     Dates: start: 19990101
  3. DIAZEPAM [Concomitant]
     Indication: NERVOUS SYSTEM DISORDER
     Dosage: 10 MG/DAY IN MORNING
     Route: 048
     Dates: start: 19990101
  4. FLUNARIN [Concomitant]
     Indication: MIGRAINE
     Dosage: 10 MG, QD
     Route: 048
     Dates: start: 20070101
  5. FLUNARIN [Concomitant]
     Indication: DIZZINESS

REACTIONS (10)
  - ENDOMETRIAL DISORDER [None]
  - FEELING COLD [None]
  - HAEMORRHAGE [None]
  - HAIR TEXTURE ABNORMAL [None]
  - NERVOUSNESS [None]
  - ONYCHOPHAGIA [None]
  - SURGERY [None]
  - THYROID DISORDER [None]
  - TRICHORRHEXIS [None]
  - WEIGHT DECREASED [None]
